FAERS Safety Report 25182176 (Version 1)
Quarter: 2025Q2

REPORT INFORMATION
  Report Type: Spontaneous
  Country: US (occurrence: US)
  Receive Date: 20250410
  Receipt Date: 20250410
  Transmission Date: 20250716
  Serious: No
  Sender: NOVARTIS
  Company Number: US-002147023-NVSC2025US055275

PATIENT
  Sex: Female

DRUGS (2)
  1. KISQALI [Suspect]
     Active Substance: RIBOCICLIB
     Indication: Product used for unknown indication
     Route: 065
     Dates: start: 20250207
  2. KISQALI [Suspect]
     Active Substance: RIBOCICLIB
     Dosage: 600 MG, QD (THREE TABLETS DAILY FOR 600 MG TOTAL)
     Route: 065

REACTIONS (3)
  - Illness [Recovering/Resolving]
  - Neoplasm progression [Recovering/Resolving]
  - Asthenia [Recovering/Resolving]
